FAERS Safety Report 4569457-X (Version None)
Quarter: 2005Q1

REPORT INFORMATION
  Report Type: 
  Country: None (occurrence: None)
  Receive Date: 20050203
  Receipt Date: 20050127
  Transmission Date: 20050727
  Serious: Yes (Hospitalization)
  Sender: FDA-Public Use
  Company Number: PHFR2005GB00730

PATIENT
  Age: 53 Year
  Sex: Female

DRUGS (1)
  1. CLOZARIL [Suspect]
     Dosage: 25 X 100MG
     Route: 048

REACTIONS (4)
  - ABDOMINAL PAIN [None]
  - MALAISE [None]
  - NAUSEA [None]
  - OVERDOSE [None]
